FAERS Safety Report 5179587-X (Version None)
Quarter: 2006Q4

REPORT INFORMATION
  Report Type: 
  Country: None (occurrence: None)
  Receive Date: 20061219
  Receipt Date: 20060904
  Transmission Date: 20070319
  Serious: Yes (Hospitalization, Disabling)
  Sender: FDA-Public Use
  Company Number: FI-ELI_LILLY_AND_COMPANY-FI200609000687

PATIENT
  Age: 66 Year
  Sex: Male

DRUGS (4)
  1. PEMETREXED [Suspect]
     Indication: MESOTHELIOMA
     Dosage: UNK, UNK
     Route: 042
     Dates: start: 20060530, end: 20060620
  2. CISPLATIN [Concomitant]
     Indication: MESOTHELIOMA
     Dosage: UNK, UNK
     Route: 042
     Dates: start: 20060530, end: 20060620
  3. NEXIUM [Concomitant]
     Dosage: 40 MG, DAILY (1/D)
     Route: 048
  4. FOLVITE                                 /CAN/ [Concomitant]
     Indication: PROPHYLAXIS
     Dosage: 1 MG, UNK
     Route: 048

REACTIONS (4)
  - BRAIN OEDEMA [None]
  - DYSARTHRIA [None]
  - FACIAL PALSY [None]
  - REVERSIBLE POSTERIOR LEUKOENCEPHALOPATHY SYNDROME [None]
